FAERS Safety Report 22017067 (Version 1)
Quarter: 2023Q1

REPORT INFORMATION
  Report Type: Spontaneous
  Country: DE (occurrence: DE)
  Receive Date: 20230221
  Receipt Date: 20230221
  Transmission Date: 20230418
  Serious: Yes (Other)
  Sender: FDA-Public Use
  Company Number: None

PATIENT

DRUGS (8)
  1. LEVETIRACETAM [Suspect]
     Active Substance: LEVETIRACETAM
     Indication: Epilepsy of infancy with migrating focal seizures
     Dosage: 56 MILLIGRAM/KILOGRAM
  2. VALPROATE [Suspect]
     Active Substance: VALPROIC ACID
     Indication: Epilepsy of infancy with migrating focal seizures
     Dates: start: 202209
  3. PHENOBARBITAL [Suspect]
     Active Substance: PHENOBARBITAL
     Indication: Epilepsy of infancy with migrating focal seizures
     Dosage: 6.2 MILLIGRAM/KILOGRAM
  4. PHENOBARBITAL [Suspect]
     Active Substance: PHENOBARBITAL
     Dosage: 5 MILLIGRAM/KILOGRAM
  5. VIGABATRIN [Suspect]
     Active Substance: VIGABATRIN
     Indication: Epilepsy of infancy with migrating focal seizures
     Dosage: 145 MILLIGRAM/KILOGRAM
  6. PERAMPANEL [Concomitant]
     Active Substance: PERAMPANEL
     Indication: Epilepsy of infancy with migrating focal seizures
     Dosage: 2 MILLIGRAM
  7. CARNITINE [Concomitant]
     Active Substance: CARNITINE
     Indication: Product used for unknown indication
     Dosage: 100 MILLIGRAM/KILOGRAM
     Route: 042
  8. CLOBAZAM [Concomitant]
     Active Substance: CLOBAZAM
     Indication: Epilepsy of infancy with migrating focal seizures
     Dosage: 1 MILLIGRAM/KILOGRAM

REACTIONS (6)
  - Thrombocytopenia [Unknown]
  - Medication error [Unknown]
  - Accidental overdose [Unknown]
  - Vomiting [Recovered/Resolved]
  - Tremor [Recovered/Resolved]
  - Drug ineffective [Unknown]
